FAERS Safety Report 4446493-5 (Version None)
Quarter: 2004Q3

REPORT INFORMATION
  Report Type: 
  Country: None (occurrence: None)
  Receive Date: 20040908
  Receipt Date: 20040818
  Transmission Date: 20050211
  Serious: Yes (Hospitalization)
  Sender: FDA-Public Use
  Company Number: 04P-114-0271113-00

PATIENT
  Age: 55 Year
  Sex: Female

DRUGS (6)
  1. MERIDIA [Suspect]
     Indication: OBESITY
     Dosage: 10 MG, 1 IN 1 D, ORAL
     Route: 048
     Dates: start: 20030528, end: 20030619
  2. HYDROCHLOROTHIAZIDE [Suspect]
     Dosage: 25 MG, 1 IN 1 D, ORAL
     Route: 048
     Dates: start: 19880101
  3. CANDESARTAN CILEXETIL [Concomitant]
  4. THYRAX DUOTAB [Concomitant]
  5. PRAVASTATIN SODIUM [Concomitant]
  6. ERGENYL CHRONO [Concomitant]

REACTIONS (4)
  - CONVULSION [None]
  - DRUG INTERACTION [None]
  - HYPOKALAEMIA [None]
  - HYPONATRAEMIA [None]
